FAERS Safety Report 4449524-1 (Version None)
Quarter: 2004Q3

REPORT INFORMATION
  Report Type: 
  Country: None (occurrence: None)
  Receive Date: 20040914
  Receipt Date: 20031126
  Transmission Date: 20050211
  Serious: No
  Sender: FDA-Public Use
  Company Number: 200311394JP

PATIENT
  Sex: Female

DRUGS (3)
  1. DAONIL [Suspect]
     Route: 048
  2. LASIX [Suspect]
  3. ANTIHYPERTENSIVES [Concomitant]

REACTIONS (1)
  - TRANSAMINASES INCREASED [None]
